FAERS Safety Report 4749184-6 (Version None)
Quarter: 2005Q3

REPORT INFORMATION
  Report Type: 
  Country: None (occurrence: None)
  Receive Date: 20050812
  Receipt Date: 20050420
  Transmission Date: 20060218
  Serious: Yes (Other)
  Sender: FDA-Public Use
  Company Number: 399854

PATIENT
  Age: 51 Year
  Sex: Male

DRUGS (2)
  1. PEGASYS [Suspect]
     Indication: HEPATITIS C VIRUS
     Dosage: 180 MCG 1 PER 1 WEEK SUBCUTANEOUS
     Route: 058
     Dates: start: 20041011, end: 20050415
  2. RIBASPHERE [Suspect]
     Indication: HEPATITIS C VIRUS
     Dosage: 1600 MG DAILY ORAL
     Route: 048
     Dates: start: 20041011, end: 20050415

REACTIONS (5)
  - FATIGUE [None]
  - HYPERTENSION [None]
  - INSOMNIA [None]
  - SARCOIDOSIS [None]
  - WEIGHT DECREASED [None]
